FAERS Safety Report 11492391 (Version 1)
Quarter: 2015Q3

REPORT INFORMATION
  Report Type: Report from Study
  Country: RS (occurrence: RS)
  Receive Date: 20150910
  Receipt Date: 20150910
  Transmission Date: 20151125
  Serious: Yes (Other)
  Sender: FDA-Public Use
  Company Number: PHHY2009RS072802

PATIENT
  Sex: Female
  Weight: 72 kg

DRUGS (3)
  1. TASIGNA [Suspect]
     Active Substance: NILOTINIB
     Dosage: 400 MG, UNK
     Route: 065
     Dates: start: 20080814
  2. TASIGNA [Suspect]
     Active Substance: NILOTINIB
     Indication: CHRONIC MYELOID LEUKAEMIA
     Dosage: 800 MG, UNK
     Route: 065
     Dates: start: 20080630, end: 20080722
  3. TASIGNA [Suspect]
     Active Substance: NILOTINIB
     Dosage: 800 MG, UNK
     Route: 065
     Dates: start: 20091126

REACTIONS (8)
  - Transaminases increased [Not Recovered/Not Resolved]
  - Blood glucose abnormal [Unknown]
  - Anaemia [Unknown]
  - Thrombocytopenia [Recovered/Resolved]
  - Neutropenia [Recovered/Resolved]
  - Hepatotoxicity [Not Recovered/Not Resolved]
  - Bone marrow failure [Recovered/Resolved]
  - Haematotoxicity [Recovered/Resolved]
